FAERS Safety Report 7112881-1 (Version None)
Quarter: 2010Q4

REPORT INFORMATION
  Report Type: 
  Country: None (occurrence: None)
  Receive Date: 20101119
  Receipt Date: 20100318
  Transmission Date: 20110411
  Serious: No
  Sender: FDA-Public Use
  Company Number: US-BRISTOL-MYERS SQUIBB COMPANY-15024524

PATIENT
  Age: 89 Year
  Sex: Female
  Weight: 42 kg

DRUGS (9)
  1. AVALIDE [Suspect]
     Indication: PALPITATIONS
     Dosage: 1DF=150/12.5MG
     Dates: start: 20100101
  2. SYNTHROID [Concomitant]
  3. XALATAN [Concomitant]
     Dosage: EYE DROPS
     Route: 047
  4. AMLODIPINE [Concomitant]
  5. VITAMINS [Concomitant]
  6. FISH OIL [Concomitant]
  7. ASPIRIN [Concomitant]
  8. CALCIUM [Concomitant]
  9. ESTRADIOL [Concomitant]

REACTIONS (1)
  - DIZZINESS [None]
